FAERS Safety Report 4406883-3 (Version None)
Quarter: 2004Q3

REPORT INFORMATION
  Report Type: 
  Country: None (occurrence: None)
  Receive Date: 20040715
  Receipt Date: 20040701
  Transmission Date: 20050211
  Serious: Yes (Life-Threatening)
  Sender: FDA-Public Use
  Company Number: FR-JNJFOC-20040700530

PATIENT
  Age: 39 Year
  Sex: Female

DRUGS (3)
  1. ZALDIAR (TRAMADOL/APAP) TABLETS [Suspect]
     Indication: DRUG USE FOR UNKNOWN INDICATION
     Dosage: , 3 IN 1 DAY, ORAL
     Route: 048
     Dates: start: 20040505, end: 20040507
  2. CONTRACEPTIVES (ORAL CONTRACEPTIVE NOS) [Concomitant]
     Indication: DRUG USE FOR UNKNOWN INDICATION
  3. RIVOTRIL (CLONAZEPAM) [Concomitant]

REACTIONS (4)
  - DRUG INTERACTION [None]
  - PULMONARY EMBOLISM [None]
  - RENAL FAILURE ACUTE [None]
  - THROMBOTIC MICROANGIOPATHY [None]
